FAERS Safety Report 21751280 (Version 11)
Quarter: 2023Q2

REPORT INFORMATION
  Report Type: Spontaneous
  Country: US (occurrence: US)
  Receive Date: 20221220
  Receipt Date: 20230403
  Transmission Date: 20230722
  Serious: Yes (Hospitalization, Other)
  Sender: FDA-Public Use
  Company Number: US-UNITED THERAPEUTICS-UNT-2022-030560

PATIENT
  Sex: Female
  Weight: 66.213 kg

DRUGS (8)
  1. REMODULIN [Suspect]
     Active Substance: TREPROSTINIL
     Indication: Pulmonary arterial hypertension
     Dosage: 0.00812 ?G/KG, CONTINUING
     Route: 058
     Dates: start: 2022
  2. REMODULIN [Suspect]
     Active Substance: TREPROSTINIL
     Dosage: 0.00937 ?G/KG, (SELF-FILLED WITH 3ML PER CASSETTE AT PUMP RATE 39 MCL/HOUR) CONTINUING
     Route: 058
  3. REMODULIN [Suspect]
     Active Substance: TREPROSTINIL
     Dosage: UNK, CONTINUING
     Route: 058
     Dates: start: 20221109
  4. REMODULIN [Suspect]
     Active Substance: TREPROSTINIL
     Indication: Pulmonary arterial hypertension
     Dosage: 0.012 ?G/KG, CONTINUING (SELF-FILLED REMUNITY CASSETTE WITH 2.3 ML AT A PUMP RATE OF 25 MCL/HOUR)
     Route: 058
  5. REMODULIN [Suspect]
     Active Substance: TREPROSTINIL
     Dosage: 0.015 ?G/KG, (SELF-FILLED WITH 2.3ML PER CASSETTE AT PUMP RATE OF 25 MCL/HOUR) CONTINUING
     Route: 058
  6. REMODULIN [Suspect]
     Active Substance: TREPROSTINIL
     Dosage: UNK (SELF FILL CASSETTE WITH 2.5 ML; AT A RATE OF 25 MCL/HOUR), CONTINUING
     Route: 058
  7. LIDOCAINE [Suspect]
     Active Substance: LIDOCAINE
     Indication: Pain
     Dosage: UNK
     Route: 065
  8. OPSUMIT [Concomitant]
     Active Substance: MACITENTAN
     Indication: Product used for unknown indication
     Dosage: UNK
     Route: 065

REACTIONS (29)
  - Cerebral haemorrhage [Unknown]
  - Nausea [Not Recovered/Not Resolved]
  - Headache [Not Recovered/Not Resolved]
  - Infusion site pain [Not Recovered/Not Resolved]
  - Infusion site erythema [Not Recovered/Not Resolved]
  - Infusion site swelling [Not Recovered/Not Resolved]
  - Infusion site irritation [Unknown]
  - Device dislocation [Unknown]
  - Device failure [Not Recovered/Not Resolved]
  - Device leakage [Unknown]
  - Device failure [Recovered/Resolved]
  - Device failure [Unknown]
  - Infusion site rash [Unknown]
  - Infusion site pruritus [Unknown]
  - Device infusion issue [Unknown]
  - Device use issue [Unknown]
  - Infusion site inflammation [Unknown]
  - Incoherent [Unknown]
  - Sleep disorder [Unknown]
  - Pyrexia [Unknown]
  - Drug ineffective [Unknown]
  - Infusion site warmth [Unknown]
  - Peripheral swelling [Unknown]
  - Cancer pain [Unknown]
  - Dyspnoea [Unknown]
  - Stress [Unknown]
  - Visual impairment [Unknown]
  - Feeling abnormal [Unknown]
  - Dizziness [Unknown]

NARRATIVE: CASE EVENT DATE: 20220101
